FAERS Safety Report 10534135 (Version 1)
Quarter: 2014Q4

REPORT INFORMATION
  Report Type: Spontaneous
  Country: US (occurrence: None)
  Receive Date: 20141020
  Receipt Date: 20141020
  Transmission Date: 20150529
  Serious: Yes (Other)
  Sender: FDA-Public Use
  Company Number: BL-2014-004805

PATIENT
  Age: 53 Year
  Sex: Female
  Weight: 133.36 kg

DRUGS (4)
  1. LISINOPRIL (LISINOPRIL) [Concomitant]
     Active Substance: LISINOPRIL
  2. METOPROLOL (METOPROLOL) [Concomitant]
     Active Substance: METOPROLOL
  3. SHOWER TO SHOWER ORIGINAL FRESH [Suspect]
     Active Substance: TALC
     Indication: POOR PERSONAL HYGIENE
     Route: 061
  4. LASIX [Concomitant]
     Active Substance: FUROSEMIDE

REACTIONS (3)
  - Herpes zoster [None]
  - Uterine cancer [None]
  - Nerve compression [None]

NARRATIVE: CASE EVENT DATE: 2010
